FAERS Safety Report 8458730-0 (Version None)
Quarter: 2012Q2

REPORT INFORMATION
  Report Type: 
  Country: None (occurrence: None)
  Receive Date: 20120618
  Receipt Date: 20120531
  Transmission Date: 20120825
  Serious: Yes (Other)
  Sender: FDA-Public Use
  Company Number: FK201201526

PATIENT
  Age: 18 Year
  Sex: Female

DRUGS (2)
  1. HEPARIN [Suspect]
     Indication: HEPATIC VEIN THROMBOSIS
     Dosage: , INTRAVENOUS (NOT OTHERWISE SPECIFIED)
     Route: 042
  2. ACTIVASE [Concomitant]

REACTIONS (13)
  - WEIGHT INCREASED [None]
  - EPISTAXIS [None]
  - BUDD-CHIARI SYNDROME [None]
  - SPLENIC INFARCTION [None]
  - PLEURAL HAEMORRHAGE [None]
  - VENA CAVA THROMBOSIS [None]
  - PAIN [None]
  - HEPATIC CONGESTION [None]
  - HEPARIN-INDUCED THROMBOCYTOPENIA [None]
  - PLEURAL EFFUSION [None]
  - TREATMENT NONCOMPLIANCE [None]
  - ASCITES [None]
  - HEPATIC VEIN THROMBOSIS [None]
